FAERS Safety Report 16827706 (Version 1)
Quarter: 2019Q3

REPORT INFORMATION
  Report Type: Spontaneous
  Country: US (occurrence: US)
  Receive Date: 20190729
  Receipt Date: 20190729
  Transmission Date: 20191005
  Serious: No
  Sender: FDA-Public Use
  Company Number: None

PATIENT
  Age: 53 Year
  Sex: Female

DRUGS (1)
  1. ENBREL [Suspect]
     Active Substance: ETANERCEPT
     Dates: start: 201904

REACTIONS (4)
  - Therapy cessation [None]
  - Family stress [None]
  - Pruritus [None]
  - Treatment noncompliance [None]

NARRATIVE: CASE EVENT DATE: 20190729
